FAERS Safety Report 24896314 (Version 1)
Quarter: 2025Q1

REPORT INFORMATION
  Report Type: Spontaneous
  Country: AU (occurrence: AU)
  Receive Date: 20250128
  Receipt Date: 20250128
  Transmission Date: 20250408
  Serious: Yes (Other)
  Sender: SANDOZ
  Company Number: AU-SANDOZ-SDZ2025AU002726

PATIENT
  Age: 48 Year
  Sex: Male

DRUGS (4)
  1. CYCLOSPORINE [Suspect]
     Active Substance: CYCLOSPORINE
     Indication: Large granular lymphocytosis
     Route: 065
  2. CYCLOPHOSPHAMIDE [Suspect]
     Active Substance: CYCLOPHOSPHAMIDE
     Indication: Large granular lymphocytosis
     Route: 065
  3. METHOTREXATE [Suspect]
     Active Substance: METHOTREXATE
     Indication: Large granular lymphocytosis
     Route: 065
  4. TOFACITINIB [Suspect]
     Active Substance: TOFACITINIB
     Indication: Large granular lymphocytosis
     Route: 065

REACTIONS (3)
  - Neutropenia [Unknown]
  - Drug ineffective [Unknown]
  - Product use in unapproved indication [Unknown]
